FAERS Safety Report 7831227-4 (Version None)
Quarter: 2011Q4

REPORT INFORMATION
  Report Type: 
  Country: None (occurrence: None)
  Receive Date: 20111021
  Receipt Date: 20111020
  Transmission Date: 20120403
  Serious: Yes (Hospitalization, Other)
  Sender: FDA-Public Use
  Company Number: RU-ROCHE-623066

PATIENT
  Sex: Female
  Weight: 50 kg

DRUGS (5)
  1. PLACEBO [Suspect]
     Indication: RHEUMATOID ARTHRITIS
     Dosage: THE PATIENT WAS ENROLLED IN WA18063 STUDY.
     Route: 065
  2. MELOXICAM [Concomitant]
  3. AKTIFERRIN [Concomitant]
  4. ACTEMRA [Suspect]
     Indication: RHEUMATOID ARTHRITIS
     Route: 042
  5. OMEPRAZOLE [Concomitant]

REACTIONS (2)
  - ANAEMIA [None]
  - LEUKOPENIA [None]
